FAERS Safety Report 21372236 (Version 4)
Quarter: 2022Q4

REPORT INFORMATION
  Report Type: Spontaneous
  Country: US (occurrence: US)
  Receive Date: 20220924
  Receipt Date: 20221123
  Transmission Date: 20230113
  Serious: Yes (Hospitalization, Other)
  Sender: FDA-Public Use
  Company Number: US-SA-SAC20220922001242

PATIENT
  Age: 60 Year
  Sex: Female
  Weight: 150 kg

DRUGS (3)
  1. DUPIXENT [Suspect]
     Active Substance: DUPILUMAB
     Indication: Asthma
     Dosage: 200 MG, QOW
     Route: 058
     Dates: start: 202201
  2. XELJANZ [Concomitant]
     Active Substance: TOFACITINIB CITRATE
     Dosage: UNK
  3. TYMLOS [Concomitant]
     Active Substance: ABALOPARATIDE
     Dosage: UNK

REACTIONS (10)
  - Hip fracture [Unknown]
  - Fall [Unknown]
  - Chronic obstructive pulmonary disease [Unknown]
  - Tidal volume decreased [Unknown]
  - Spinal fracture [Unknown]
  - Thrombosis [Unknown]
  - Arthritis [Unknown]
  - Pain [Unknown]
  - Inflammation [Unknown]
  - Fall [Unknown]

NARRATIVE: CASE EVENT DATE: 20220101
